FAERS Safety Report 8981836 (Version 1)
Quarter: 2012Q4

REPORT INFORMATION
  Report Type: 
  Country: US (occurrence: US)
  Receive Date: 20121212
  Receipt Date: 20121212
  Transmission Date: 20130627
  Serious: Yes (Death)
  Sender: FDA-Public Use
  Company Number: US-ASTELLAS-1119606

PATIENT
  Sex: Male

DRUGS (15)
  1. TARCEVA [Suspect]
     Indication: LUNG NEOPLASM MALIGNANT
     Route: 048
     Dates: start: 20100614, end: 20100913
  2. TARCEVA [Suspect]
     Indication: METASTASIS
  3. HYDROMORPHONE HCL [Concomitant]
     Dosage: 1-2 tablets. patient approved for ONC-Helping hands
     Route: 048
  4. MORPHINE SULFATE [Concomitant]
     Dosage: 60 tab, patient approved for ONC-helping hands
     Route: 048
  5. METHYLPHENIDATE [Concomitant]
     Dosage: 120 tab, take one in am and one at noon.May double if ineffective
     Route: 048
  6. MEGESTROL [Concomitant]
     Dosage: 5 CC
     Route: 048
  7. CITALOPRAM [Concomitant]
     Route: 048
  8. VITAMIN B COMPLEX [Concomitant]
     Route: 048
  9. POTASSIUM [Concomitant]
     Route: 048
  10. METFORMIN [Concomitant]
     Route: 048
  11. DOCUSATE SODIUM [Concomitant]
     Dosage: 60
     Route: 048
  12. MULTIVITAMINS [Concomitant]
     Route: 065
  13. PROCHLORPERAZINE [Concomitant]
     Dosage: for nausea, ra as directed
     Route: 048
  14. ALBUTEROL [Concomitant]
     Dosage: inhale 2 puffs by mouth as needed for wheezing.
     Route: 048
  15. BUDESONIDE [Concomitant]
     Dosage: inhale 2 puffs by mouth, twice daily.
     Route: 048

REACTIONS (1)
  - Lung neoplasm malignant [Fatal]
